FAERS Safety Report 10525168 (Version 1)
Quarter: 2014Q4

REPORT INFORMATION
  Report Type: Spontaneous
  Country: US (occurrence: None)
  Receive Date: 20141015
  Receipt Date: 20141015
  Transmission Date: 20150528
  Serious: Yes (Life-Threatening, Hospitalization, Disabling)
  Sender: FDA-Public Use
  Company Number: None

PATIENT
  Age: 48 Year
  Sex: Female
  Weight: 90.72 kg

DRUGS (1)
  1. BENICAR [Suspect]
     Active Substance: OLMESARTAN MEDOXOMIL
     Indication: HYPERTENSION
     Dosage: TAKEN BY MOUTH

REACTIONS (10)
  - Coeliac disease [None]
  - Abdominal pain upper [None]
  - Vomiting [None]
  - Chest pain [None]
  - Presyncope [None]
  - Abdominal discomfort [None]
  - Palpitations [None]
  - Blood pressure increased [None]
  - Malabsorption [None]
  - Weight decreased [None]

NARRATIVE: CASE EVENT DATE: 20130929
